FAERS Safety Report 7683841 (Version 11)
Quarter: 2013Q1

REPORT INFORMATION
  Report Type: Spontaneous
  Country: CA (occurrence: CA)
  Receive Date: 20101126
  Receipt Date: 20130129
  Transmission Date: 20140127
  Serious: Yes (Hospitalization, Other)
  Sender: FDA-Public Use
  Company Number: PHHY2009CA17701

PATIENT
  Sex: Female

DRUGS (2)
  1. SANDOSTATIN LAR [Suspect]
     Indication: CARCINOID TUMOUR OF THE PANCREAS
     Dosage: UNK UKN, UNK
     Dates: start: 20051209
  2. SANDOSTATIN LAR [Suspect]
     Dosage: 60 MG, EVERY 2 WEEKS
     Route: 030

REACTIONS (27)
  - Gastrointestinal disorder [Unknown]
  - Waist circumference increased [Not Recovered/Not Resolved]
  - Amnesia [Unknown]
  - Injection site mass [Recovering/Resolving]
  - Gait disturbance [Recovering/Resolving]
  - Injection site pain [Not Recovered/Not Resolved]
  - Emphysema [Unknown]
  - Oedema peripheral [Not Recovered/Not Resolved]
  - Ascites [Not Recovered/Not Resolved]
  - Dyspnoea [Not Recovered/Not Resolved]
  - Diarrhoea [Not Recovered/Not Resolved]
  - Abdominal pain [Not Recovered/Not Resolved]
  - Headache [Not Recovered/Not Resolved]
  - Abdominal pain upper [Unknown]
  - Unresponsive to stimuli [Unknown]
  - Injection site swelling [Unknown]
  - Muscle atrophy [Unknown]
  - Scar [Not Recovered/Not Resolved]
  - Skin hypertrophy [Not Recovered/Not Resolved]
  - Skin disorder [Not Recovered/Not Resolved]
  - Injection site erythema [Not Recovered/Not Resolved]
  - Cachexia [Unknown]
  - Dyskinesia [Unknown]
  - Erythema [Not Recovered/Not Resolved]
  - Malaise [Unknown]
  - Nausea [Not Recovered/Not Resolved]
  - Hypophagia [Unknown]
